FAERS Safety Report 6900903-X (Version None)
Quarter: 2010Q3

REPORT INFORMATION
  Report Type: 
  Country: None (occurrence: None)
  Receive Date: 20100803
  Receipt Date: 20100726
  Transmission Date: 20110219
  Serious: Yes (Congenital Anomaly)
  Sender: FDA-Public Use
  Company Number: A0872577A

PATIENT
  Sex: Male
  Weight: 2 kg

DRUGS (7)
  1. COMBIVIR [Suspect]
     Indication: HIV INFECTION
     Dates: start: 20030819, end: 20031128
  2. VIRACEPT [Suspect]
     Indication: HIV INFECTION
     Dates: start: 20030819, end: 20031128
  3. BETAMETHASONE [Concomitant]
  4. FERROUS SULFATE [Concomitant]
  5. FOLIC ACID [Concomitant]
  6. METHYLDOPA [Concomitant]
  7. SULFAMETHOXAZOLE [Concomitant]

REACTIONS (3)
  - DRUG EXPOSURE DURING PREGNANCY [None]
  - MENINGOMYELOCELE [None]
  - PREMATURE BABY [None]
